FAERS Safety Report 4582212-X (Version None)
Quarter: 2005Q1

REPORT INFORMATION
  Report Type: 
  Country: None (occurrence: None)
  Receive Date: 20050214
  Receipt Date: 20050202
  Transmission Date: 20050727
  Serious: Yes (Other)
  Sender: FDA-Public Use
  Company Number: 2005023966

PATIENT
  Sex: Female
  Weight: 65.7716 kg

DRUGS (1)
  1. SUDAFED SINUS HEADACHE CAPLETS (PARACETAMOL, PSEUDOEPHEDRINE) [Suspect]
     Indication: SINUS HEADACHE
     Dosage: 2 TABLETS, PRN, ORAL
     Route: 048

REACTIONS (1)
  - BREAST CANCER FEMALE [None]
